FAERS Safety Report 8925956 (Version 4)
Quarter: 2013Q1

REPORT INFORMATION
  Report Type: Spontaneous
  Country: US (occurrence: US)
  Receive Date: 20121126
  Receipt Date: 20130305
  Transmission Date: 20140127
  Serious: Yes (Other)
  Sender: FDA-Public Use
  Company Number: PHEH2012US022799

PATIENT
  Age: 57 Year
  Sex: Female
  Weight: 84 kg

DRUGS (1)
  1. GILENYA [Suspect]
     Indication: MULTIPLE SCLEROSIS
     Dosage: 0.5 MG, QD
     Route: 048
     Dates: start: 20120928, end: 20121206

REACTIONS (7)
  - Pancreatitis [Unknown]
  - Abdominal pain upper [Unknown]
  - Vomiting [Unknown]
  - Back pain [Unknown]
  - Malaise [Unknown]
  - Abdominal discomfort [Unknown]
  - Dyspnoea [Unknown]
